FAERS Safety Report 7001454-7 (Version None)
Quarter: 2010Q3

REPORT INFORMATION
  Report Type: 
  Country: None (occurrence: None)
  Receive Date: 20100920
  Receipt Date: 20090910
  Transmission Date: 20110219
  Serious: No
  Sender: FDA-Public Use
  Company Number: US-ASTRAZENECA-2009SE12387

PATIENT
  Age: 61 Year
  Sex: Male
  Weight: 93.4 kg

DRUGS (13)
  1. SEROQUEL XR [Suspect]
     Indication: BIPOLAR DISORDER
     Route: 048
  2. NEXIUM [Concomitant]
  3. CRESTOR [Concomitant]
  4. NAMENDA [Concomitant]
  5. VALIUM [Concomitant]
  6. DYNACIRC-SR [Concomitant]
  7. VISTARIL [Concomitant]
  8. LEVOXYL [Concomitant]
  9. LEXAPRO [Concomitant]
  10. IRON [Concomitant]
  11. RAPAFLO [Concomitant]
  12. DDAVP [Concomitant]
  13. ASCORBIC ACID [Concomitant]

REACTIONS (3)
  - HYPERTENSION [None]
  - JOINT SWELLING [None]
  - WEIGHT INCREASED [None]
